FAERS Safety Report 5319471-1 (Version None)
Quarter: 2007Q2

REPORT INFORMATION
  Report Type: 
  Country: None (occurrence: None)
  Receive Date: 20070508
  Receipt Date: 20070504
  Transmission Date: 20071010
  Serious: Yes (Hospitalization)
  Sender: FDA-Public Use
  Company Number: US-BOEHRINGER INGELHEIM PHARMACEUTICALS, INC.-2007-DE-02707GD

PATIENT
  Age: 67 Year
  Sex: Female

DRUGS (6)
  1. CLONIDINE [Suspect]
     Indication: DYSPNOEA
  2. HYDROCHLOROTHIAZIDE [Suspect]
     Indication: DYSPNOEA
  3. AMLODIPINE [Suspect]
     Indication: DYSPNOEA
  4. BENAZEPRIL HYDROCHLORIDE [Suspect]
     Indication: DYSPNOEA
  5. LOSARTAN POTASSIUM [Suspect]
     Indication: DYSPNOEA
  6. VERAPAMIL [Suspect]
     Indication: DYSPNOEA

REACTIONS (1)
  - DRUG INEFFECTIVE [None]
